FAERS Safety Report 17945952 (Version 2)
Quarter: 2020Q3

REPORT INFORMATION
  Report Type: Report from Study
  Country: US (occurrence: US)
  Receive Date: 20200626
  Receipt Date: 20200909
  Transmission Date: 20201103
  Serious: Yes (Hospitalization, Other)
  Sender: FDA-Public Use
  Company Number: US-BRISTOL-MYERS SQUIBB COMPANY-BMS-2020-049569

PATIENT
  Age: 59 Year
  Sex: Male
  Weight: 103.5 kg

DRUGS (19)
  1. ONDANSETRON [Concomitant]
     Active Substance: ONDANSETRON
     Indication: PRODUCT USED FOR UNKNOWN INDICATION
     Dosage: 4 MILLIGRAM, PRN
     Route: 065
  2. COLACE [Concomitant]
     Active Substance: DOCUSATE SODIUM
     Indication: PRODUCT USED FOR UNKNOWN INDICATION
     Dosage: UNK, QD
     Route: 065
  3. BEVACIZUMAB. [Suspect]
     Active Substance: BEVACIZUMAB
     Indication: GLIOBLASTOMA MULTIFORME
     Dosage: 10 MILLIGRAM, Q2WK
     Route: 042
     Dates: start: 20191114
  4. LISINOPRIL. [Concomitant]
     Active Substance: LISINOPRIL
     Indication: PRODUCT USED FOR UNKNOWN INDICATION
     Dosage: 2.5 MILLIGRAM, QD
     Route: 065
  5. ALPRAZOLAM. [Concomitant]
     Active Substance: ALPRAZOLAM
     Indication: PRODUCT USED FOR UNKNOWN INDICATION
     Dosage: 1 MILLIGRAM, PRN
     Route: 065
  6. LORATADINE. [Concomitant]
     Active Substance: LORATADINE
     Indication: PRODUCT USED FOR UNKNOWN INDICATION
     Dosage: 10 MILLIGRAM, QD
     Route: 065
     Dates: start: 20180503
  7. PRILOSEC [Concomitant]
     Active Substance: OMEPRAZOLE MAGNESIUM
     Indication: PRODUCT USED FOR UNKNOWN INDICATION
     Dosage: 20 MILLIGRAM, QD
     Route: 065
  8. IPILIMUMAB [Suspect]
     Active Substance: IPILIMUMAB
     Dosage: COMPLETED 4 DOSES
  9. IBUPROFEN. [Concomitant]
     Active Substance: IBUPROFEN
     Indication: PRODUCT USED FOR UNKNOWN INDICATION
     Dosage: 400 MILLIGRAM, PRN
     Route: 065
  10. LEVOTHYROXINE. [Concomitant]
     Active Substance: LEVOTHYROXINE
     Indication: PRODUCT USED FOR UNKNOWN INDICATION
     Dosage: 150 MICROGRAM
     Route: 065
     Dates: start: 20200409
  11. ASPIRINE [Concomitant]
     Active Substance: ASPIRIN
     Indication: PRODUCT USED FOR UNKNOWN INDICATION
     Dosage: 81 MILLIGRAM, QD
     Route: 065
  12. ACETAMINOPHEN. [Concomitant]
     Active Substance: ACETAMINOPHEN
     Indication: PRODUCT USED FOR UNKNOWN INDICATION
     Dosage: 650 MILLIGRAM, PRN
     Route: 065
  13. SIMVASTATIN. [Concomitant]
     Active Substance: SIMVASTATIN
     Indication: PRODUCT USED FOR UNKNOWN INDICATION
     Dosage: 20 MILLIGRAM
     Route: 065
  14. FIORICET [Concomitant]
     Active Substance: ACETAMINOPHEN\BUTALBITAL\CAFFEINE
     Indication: PRODUCT USED FOR UNKNOWN INDICATION
     Dosage: 2 TABLETS, BID
     Route: 065
  15. SYNTHROID [Concomitant]
     Active Substance: LEVOTHYROXINE SODIUM
     Indication: PRODUCT USED FOR UNKNOWN INDICATION
     Dosage: 150 MICROGRAM, QD
     Route: 065
  16. NIVOLUMAB [Suspect]
     Active Substance: NIVOLUMAB
     Indication: GLIOBLASTOMA MULTIFORME
     Dosage: 240 MILLIGRAM, Q2WK
     Route: 042
     Dates: start: 20191114
  17. ZOLPIDEM [Concomitant]
     Active Substance: ZOLPIDEM TARTRATE
     Indication: PRODUCT USED FOR UNKNOWN INDICATION
     Dosage: 10 MILLIGRAM, PRN
     Route: 065
  18. IPILIMUMAB [Suspect]
     Active Substance: IPILIMUMAB
     Indication: GLIOBLASTOMA MULTIFORME
     Dosage: 1 MILLIGRAM/KILOGRAM
     Route: 065
     Dates: start: 20191114
  19. METOPROLOL. [Concomitant]
     Active Substance: METOPROLOL
     Indication: PRODUCT USED FOR UNKNOWN INDICATION
     Dosage: 100 MILLIGRAM, QD
     Route: 065

REACTIONS (1)
  - Seizure [Recovering/Resolving]

NARRATIVE: CASE EVENT DATE: 20200613
